FAERS Safety Report 15764035 (Version 1)
Quarter: 2018Q4

REPORT INFORMATION
  Report Type: Spontaneous
  Country: JP (occurrence: JP)
  Receive Date: 20181227
  Receipt Date: 20181227
  Transmission Date: 20190205
  Serious: Yes (Life-Threatening, Hospitalization, Other)
  Sender: FDA-Public Use
  Company Number: JP-BRISTOL-MYERS SQUIBB COMPANY-BMS-2018-121116

PATIENT
  Age: 69 Year
  Sex: Female
  Weight: 53.5 kg

DRUGS (1)
  1. OPDIVO [Suspect]
     Active Substance: NIVOLUMAB
     Indication: HEAD AND NECK CANCER
     Dosage: 160 MG/DAY
     Route: 041
     Dates: start: 20170825, end: 20171013

REACTIONS (3)
  - Pneumonia [Recovered/Resolved]
  - Malignant neoplasm progression [Unknown]
  - Hypercalcaemia [Recovered/Resolved]

NARRATIVE: CASE EVENT DATE: 20171115
